FAERS Safety Report 4854174-9 (Version None)
Quarter: 2005Q4

REPORT INFORMATION
  Report Type: 
  Country: None (occurrence: None)
  Receive Date: 20051213
  Receipt Date: 20051205
  Transmission Date: 20060501
  Serious: Yes (Death)
  Sender: FDA-Public Use
  Company Number: OXYA20050014

PATIENT
  Age: 45 Year
  Sex: Male

DRUGS (3)
  1. OXYCODONE AND ACETAMINOPHEN [Suspect]
     Dosage: 1 TAB ONCE OTHR
     Route: 050
     Dates: start: 20040101, end: 20040101
  2. MORPHINE [Suspect]
     Dates: start: 20040101, end: 20040101
  3. CANNABINOIDS [Suspect]
     Dates: start: 20040101, end: 20040101

REACTIONS (17)
  - ACIDOSIS [None]
  - BLOOD POTASSIUM INCREASED [None]
  - CARDIO-RESPIRATORY ARREST [None]
  - DISSEMINATED INTRAVASCULAR COAGULATION [None]
  - DRUG TOXICITY [None]
  - DYSKINESIA [None]
  - GENERAL PHYSICAL HEALTH DETERIORATION [None]
  - HEART RATE INCREASED [None]
  - HYPERTHERMIA [None]
  - HYPOCALCAEMIA [None]
  - HYPOGLYCAEMIA [None]
  - HYPOTENSION [None]
  - INCORRECT ROUTE OF DRUG ADMINISTRATION [None]
  - INTENTIONAL DRUG MISUSE [None]
  - INTERNATIONAL NORMALISED RATIO INCREASED [None]
  - LOSS OF CONSCIOUSNESS [None]
  - PUPIL FIXED [None]
